FAERS Safety Report 13005020 (Version 4)
Quarter: 2019Q1

REPORT INFORMATION
  Report Type: Spontaneous
  Country: US (occurrence: US)
  Receive Date: 20161207
  Receipt Date: 20190125
  Transmission Date: 20190417
  Serious: No
  Sender: FDA-Public Use
  Company Number: US-PFIZER INC-2016487262

PATIENT
  Age: 66 Year
  Sex: Female

DRUGS (1)
  1. LYRICA [Suspect]
     Active Substance: PREGABALIN
     Dosage: 25 MG, DAILY (1 TABLET UP TO 4 TIMES A DAY)

REACTIONS (6)
  - Poor quality product administered [Unknown]
  - Dysgeusia [Unknown]
  - Product storage error [Unknown]
  - Product outer packaging issue [Unknown]
  - Malaise [Unknown]
  - Product use issue [Unknown]
